FAERS Safety Report 8759765 (Version 1)
Quarter: 2012Q4

REPORT INFORMATION
  Report Type: 
  Country: US (occurrence: US)
  Receive Date: 20120829
  Receipt Date: 20120829
  Transmission Date: 20130627
  Serious: Yes (Other)
  Sender: FDA-Public Use
  Company Number: US-ASTRAZENECA-2012SE60521

PATIENT
  Age: 65 Year
  Sex: Female

DRUGS (2)
  1. NEXIUM [Suspect]
     Route: 048
  2. CRESTOR [Concomitant]

REACTIONS (4)
  - Lung neoplasm malignant [Unknown]
  - Bronchitis [Unknown]
  - Sinusitis [Unknown]
  - Blood cholesterol increased [Unknown]
